FAERS Safety Report 7501394-0 (Version None)
Quarter: 2011Q2

REPORT INFORMATION
  Report Type: 
  Country: None (occurrence: None)
  Receive Date: 20110524
  Receipt Date: 20110512
  Transmission Date: 20111010
  Serious: Yes (Hospitalization, Other)
  Sender: FDA-Public Use
  Company Number: US-BAYER-2011-022846

PATIENT
  Age: 17 Year
  Sex: Female
  Weight: 116 kg

DRUGS (14)
  1. ORAL CONTRACEPTIVE NOS [Concomitant]
  2. WELLBUTRIN [Concomitant]
     Indication: ATTENTION DEFICIT/HYPERACTIVITY DISORDER
  3. KLONOPIN [Concomitant]
     Indication: RESTLESS LEGS SYNDROME
  4. VICODIN [Concomitant]
     Indication: ANALGESIC THERAPY
  5. NAPROXEN [Concomitant]
  6. YASMIN [Suspect]
     Dosage: UNK
     Dates: start: 20090123, end: 20090803
  7. DROSPIRENONE AND ETHINYL ESTRADIOL [Suspect]
     Dosage: UNK
     Dates: start: 20090123, end: 20090803
  8. WELLBUTRIN [Concomitant]
     Indication: DEPRESSION
  9. DEPO-PROVERA [Concomitant]
     Indication: CONTRACEPTION
  10. ADVAIR DISKUS 100/50 [Concomitant]
     Indication: ASTHMA
  11. YAZ [Suspect]
     Dosage: UNK
     Dates: start: 20090123, end: 20090803
  12. PROPRANOLOL [Concomitant]
     Indication: HEADACHE
  13. PROPRANOLOL [Concomitant]
     Indication: HYPERTENSION
  14. CARAFATE [Concomitant]

REACTIONS (4)
  - CHOLECYSTITIS CHRONIC [None]
  - GALLBLADDER DISORDER [None]
  - CHOLECYSTITIS [None]
  - GALLBLADDER CHOLESTEROLOSIS [None]
